FAERS Safety Report 8305114-1 (Version None)
Quarter: 2012Q2

REPORT INFORMATION
  Report Type: 
  Country: None (occurrence: None)
  Receive Date: 20120423
  Receipt Date: 20120412
  Transmission Date: 20120825
  Serious: Yes (Other)
  Sender: FDA-Public Use
  Company Number: JP-ASTRAZENECA-2012SE24775

PATIENT
  Sex: Male

DRUGS (3)
  1. CASODEX [Suspect]
     Route: 048
  2. RISPERDAL [Suspect]
     Route: 065
  3. ZOLADEX [Suspect]
     Route: 058

REACTIONS (1)
  - NEUROLEPTIC MALIGNANT SYNDROME [None]
